FAERS Safety Report 18904326 (Version 3)
Quarter: 2021Q2

REPORT INFORMATION
  Report Type: Report from Study
  Country: AU (occurrence: AU)
  Receive Date: 20210217
  Receipt Date: 20210527
  Transmission Date: 20210717
  Serious: Yes (Hospitalization)
  Sender: FDA-Public Use
  Company Number: AU-PFIZER INC-2021136203

PATIENT
  Age: 38 Year
  Sex: Female
  Weight: 70.07 kg

DRUGS (14)
  1. PANTOPRAZOLE [Concomitant]
     Active Substance: PANTOPRAZOLE
     Indication: GASTROOESOPHAGEAL REFLUX DISEASE
     Dosage: 40 MG, 1X/DAY
     Route: 048
     Dates: start: 20201116
  2. FLUOROURACIL. [Suspect]
     Active Substance: FLUOROURACIL
     Dosage: 4416 MG, CYCLIC (EVERY 2 WEEKS)
     Route: 042
     Dates: start: 20210127, end: 20210512
  3. OXYCONTIN [Concomitant]
     Active Substance: OXYCODONE HYDROCHLORIDE
     Indication: ABDOMINAL PAIN
     Dosage: 50 MG, BD
     Route: 048
     Dates: start: 20190124
  4. PANADEINE FORTE [Concomitant]
     Active Substance: ACETAMINOPHEN\CODEINE PHOSPHATE
     Indication: ABDOMINAL PAIN
     Dosage: 2 TABS, 3X/DAY
     Route: 048
     Dates: start: 20201229
  5. CETUXIMAB. [Suspect]
     Active Substance: CETUXIMAB
     Indication: COLORECTAL CANCER METASTATIC
     Dosage: 920 MG, CYCLIC (EVERY 2 WEEKS)
     Route: 042
     Dates: start: 20210127
  6. ENDONE [Concomitant]
     Active Substance: OXYCODONE HYDROCHLORIDE
     Indication: ABDOMINAL PAIN
     Dosage: 5 MG, EVERY 2 HOURS
     Route: 048
     Dates: start: 20210118
  7. LEUCOVORIN. [Suspect]
     Active Substance: LEUCOVORIN
     Indication: COLORECTAL CANCER
     Dosage: 736 MG, CYCLIC (EVERY 2 WEEKS)
     Route: 042
     Dates: start: 20210127, end: 20210512
  8. ONDASETRON [ONDANSETRON] [Concomitant]
     Active Substance: ONDANSETRON
     Indication: NAUSEA
     Dosage: 4 MG, 3X/DAY (TDS)
     Route: 048
     Dates: start: 20201229, end: 20210126
  9. ENCORAFENIB [Suspect]
     Active Substance: ENCORAFENIB
     Indication: COLORECTAL CANCER METASTATIC
     Dosage: 300 MG, ONCE DAILY
     Route: 048
     Dates: start: 20210127
  10. COLOXYL WITH SENNA [Concomitant]
     Active Substance: DOCUSATE SODIUM\SENNOSIDES A AND B
     Indication: CONSTIPATION
     Dosage: 2 TAB, BD
     Route: 048
     Dates: start: 20210112
  11. MOVICOL [Concomitant]
     Active Substance: POLYETHYLENE GLYCOL 3350\POTASSIUM CHLORIDE\SODIUM BICARBONATE\SODIUM CHLORIDE
     Indication: CONSTIPATION
     Dosage: 2 SACH, BD
     Route: 048
     Dates: start: 20210112
  12. SERTRALINE [Concomitant]
     Active Substance: SERTRALINE HYDROCHLORIDE
     Indication: DEPRESSION
     Dosage: 50 MG, 1X/DAY
     Route: 048
     Dates: start: 20190607
  13. OXALIPLATIN. [Suspect]
     Active Substance: OXALIPLATIN
     Indication: COLORECTAL CANCER METASTATIC
     Dosage: 156 MG, CYCLIC (EVERY 2 WEEKS)
     Route: 042
     Dates: start: 20210127, end: 20210512
  14. FLUOROURACIL. [Suspect]
     Active Substance: FLUOROURACIL
     Indication: COLORECTAL CANCER METASTATIC
     Dosage: 736 MG, CYCLIC (EVERY 2 WEEKS), DOSE FOR IV INFUSION 4416MG
     Route: 040
     Dates: start: 20210127, end: 20210512

REACTIONS (2)
  - Klebsiella test positive [Recovered/Resolved]
  - Pyrexia [Recovered/Resolved]

NARRATIVE: CASE EVENT DATE: 20210206
